FAERS Safety Report 8379794-9 (Version None)
Quarter: 2012Q1

REPORT INFORMATION
  Report Type: 
  Country: None (occurrence: None)
  Receive Date: 20120323
  Receipt Date: 20110719
  Transmission Date: 20120608
  Serious: Yes (Hospitalization, Other)
  Sender: FDA-Public Use
  Company Number: 163-21880-11040338

PATIENT
  Age: 69 Year
  Sex: Female

DRUGS (14)
  1. METHIMAZOLE [Concomitant]
  2. OMEPRAZOLE [Concomitant]
  3. ONDANSETRON [Concomitant]
  4. DEXAMETHASONE [Concomitant]
  5. GABAPENTIN [Concomitant]
  6. REVLIMID [Suspect]
     Indication: MULTIPLE MYELOMA
     Dosage: 15 MG, 1 IN 1 D, PO 25 MG, 1 IN 1 D, PO 10-25MG, DAILY, PO 25  MG, DAYS 1-21, PO
     Route: 048
     Dates: start: 20090909
  7. REVLIMID [Suspect]
     Indication: MULTIPLE MYELOMA
     Dosage: 15 MG, 1 IN 1 D, PO 25 MG, 1 IN 1 D, PO 10-25MG, DAILY, PO 25  MG, DAYS 1-21, PO
     Route: 048
     Dates: start: 20090923
  8. REVLIMID [Suspect]
     Indication: MULTIPLE MYELOMA
     Dosage: 15 MG, 1 IN 1 D, PO 25 MG, 1 IN 1 D, PO 10-25MG, DAILY, PO 25  MG, DAYS 1-21, PO
     Route: 048
     Dates: start: 20110201
  9. REVLIMID [Suspect]
     Indication: MULTIPLE MYELOMA
     Dosage: 15 MG, 1 IN 1 D, PO 25 MG, 1 IN 1 D, PO 10-25MG, DAILY, PO 25  MG, DAYS 1-21, PO
     Route: 048
     Dates: start: 20110414
  10. COMPAZINE [Concomitant]
  11. VITAMIN D [Concomitant]
  12. MIRALAX [Concomitant]
  13. METOPROLOL TARTRATE [Concomitant]
  14. OXYCONTIN [Concomitant]

REACTIONS (4)
  - STAPHYLOCOCCAL BACTERAEMIA [None]
  - INTESTINAL OBSTRUCTION [None]
  - NEUTROPENIA [None]
  - HYPOKALAEMIA [None]
